FAERS Safety Report 10047513 (Version 1)
Quarter: 2014Q1

REPORT INFORMATION
  Report Type: Spontaneous
  Country: US (occurrence: None)
  Receive Date: 20140328
  Receipt Date: 20140328
  Transmission Date: 20141002
  Serious: Yes (Hospitalization)
  Sender: FDA-Public Use
  Company Number: None

PATIENT
  Age: 56 Year
  Sex: Male

DRUGS (1)
  1. WARFARIN [Suspect]
     Indication: CARDIAC VENTRICULAR THROMBOSIS
     Route: 048
     Dates: start: 20140205

REACTIONS (1)
  - International normalised ratio increased [None]
